FAERS Safety Report 11442768 (Version 2)
Quarter: 2015Q3

REPORT INFORMATION
  Report Type: Report from Study
  Country: US (occurrence: US)
  Receive Date: 20150901
  Receipt Date: 20150924
  Transmission Date: 20151125
  Serious: Yes (Hospitalization, Other)
  Sender: FDA-Public Use
  Company Number: US-GILEAD-2015-0169124

PATIENT
  Age: 35 Year
  Sex: Female

DRUGS (15)
  1. ONDASETRON                         /00955301/ [Concomitant]
  2. LOVENOX [Concomitant]
     Active Substance: ENOXAPARIN SODIUM
  3. LISINOPRIL. [Concomitant]
     Active Substance: LISINOPRIL
  4. NICODERM CQ [Concomitant]
     Active Substance: NICOTINE
  5. BACLOFEN. [Concomitant]
     Active Substance: BACLOFEN
  6. DIAZEPAM. [Concomitant]
     Active Substance: DIAZEPAM
  7. WARFARIN [Concomitant]
     Active Substance: WARFARIN
  8. ELAVIL [Concomitant]
     Active Substance: AMITRIPTYLINE HYDROCHLORIDE
  9. KEPPRA [Concomitant]
     Active Substance: LEVETIRACETAM
  10. CLONIDINE. [Concomitant]
     Active Substance: CLONIDINE
  11. ESOMEPRAZOLE MAGNESIUM. [Concomitant]
     Active Substance: ESOMEPRAZOLE MAGNESIUM
  12. LORAZEPAM. [Concomitant]
     Active Substance: LORAZEPAM
  13. SOFOSBUVIR [Suspect]
     Active Substance: SOFOSBUVIR
     Indication: CHRONIC HEPATITIS C
     Dosage: 400 MG, QD
     Route: 048
     Dates: start: 20141002, end: 20141022
  14. RIBAVIRIN. [Suspect]
     Active Substance: RIBAVIRIN
     Indication: CHRONIC HEPATITIS C
     Dosage: 600 MG, BID
     Route: 048
     Dates: start: 20141002, end: 20141030
  15. PROTONIX [Concomitant]
     Active Substance: PANTOPRAZOLE SODIUM

REACTIONS (5)
  - Muscle spasms [Unknown]
  - Hepatitis C RNA increased [Unknown]
  - Muscular weakness [Unknown]
  - Hypophagia [Unknown]
  - Drug ineffective [Unknown]

NARRATIVE: CASE EVENT DATE: 20141016
